FAERS Safety Report 21621229 (Version 2)
Quarter: 2022Q4

REPORT INFORMATION
  Report Type: Report from Study
  Country: PR (occurrence: PR)
  Receive Date: 20221121
  Receipt Date: 20221217
  Transmission Date: 20230113
  Serious: No
  Sender: FDA-Public Use
  Company Number: PR-ABBVIE-4207049

PATIENT
  Sex: Female
  Weight: 58.966 kg

DRUGS (2)
  1. VENCLEXTA [Suspect]
     Active Substance: VENETOCLAX
     Indication: Lymphocytic lymphoma
     Route: 048
     Dates: start: 20220801
  2. VENCLEXTA [Suspect]
     Active Substance: VENETOCLAX
     Indication: Lymphocytic lymphoma
     Route: 048

REACTIONS (4)
  - Skin ulcer [Recovering/Resolving]
  - Pain [Unknown]
  - Nausea [Unknown]
  - Pruritus [Unknown]
